FAERS Safety Report 8949925 (Version 1)
Quarter: 2012Q4

REPORT INFORMATION
  Report Type: 
  Country: US (occurrence: US)
  Receive Date: 20121205
  Receipt Date: 20121205
  Transmission Date: 20130627
  Serious: No
  Sender: FDA-Public Use
  Company Number: US-009507513-1212USA000535

PATIENT
  Sex: Female

DRUGS (7)
  1. VYTORIN [Suspect]
     Indication: BLOOD CHOLESTEROL INCREASED
     Dosage: 10mg/10mg, qd
     Route: 048
     Dates: start: 2002
  2. GEMFIBROZIL [Suspect]
     Dosage: UNK
     Dates: end: 2012
  3. ACTOPLUS MET [Concomitant]
  4. ZONISAMIDE [Concomitant]
  5. MELOXICAM [Concomitant]
  6. LEXAPRO [Concomitant]
  7. HYDROCHLOROTHIAZIDE [Concomitant]

REACTIONS (2)
  - Muscle rupture [Recovering/Resolving]
  - Myopathy [Recovering/Resolving]
